FAERS Safety Report 9943786 (Version 3)
Quarter: 2014Q2

REPORT INFORMATION
  Report Type: Report from Study
  Country: US (occurrence: US)
  Receive Date: 20140303
  Receipt Date: 20140418
  Transmission Date: 20141212
  Serious: Yes (Life-Threatening, Hospitalization)
  Sender: FDA-Public Use
  Company Number: US-ACTELION-A-NJ2014-95312

PATIENT
  Age: 65 Year
  Sex: Female

DRUGS (1)
  1. TRACLEER [Suspect]
     Indication: PULMONARY ARTERIAL HYPERTENSION
     Dosage: 62.5 MG, BID
     Route: 048
     Dates: start: 201304

REACTIONS (6)
  - Pulmonary oedema [Unknown]
  - Malaise [Unknown]
  - Hypotension [Unknown]
  - Dyspnoea [Unknown]
  - Renal failure [Unknown]
  - Endotracheal intubation [Unknown]
